FAERS Safety Report 8578648 (Version 2)
Quarter: 2013Q1

REPORT INFORMATION
  Report Type: Spontaneous
  Country: CA (occurrence: CA)
  Receive Date: 20120524
  Receipt Date: 20130117
  Transmission Date: 20140127
  Serious: Yes (Hospitalization)
  Sender: FDA-Public Use
  Company Number: CA-GLAXOSMITHKLINE-A0977785A

PATIENT
  Sex: Female
  Weight: 109.1 kg

DRUGS (9)
  1. ADVAIR [Suspect]
     Indication: ASTHMA
     Dosage: 1PUFF TWICE PER DAY
     Route: 055
     Dates: start: 1996
  2. SPIRIVA [Concomitant]
     Route: 065
  3. SALBUTAMOL [Concomitant]
     Route: 065
  4. MONOPRIL [Concomitant]
     Dosage: 10MG PER DAY
     Route: 065
  5. CYMBALTA [Concomitant]
     Dosage: 60MG PER DAY
     Route: 065
  6. ZOPICLONE [Concomitant]
     Dosage: 14MG AT NIGHT
     Route: 065
  7. VITAMIN B12 [Concomitant]
  8. VITAMIN D [Concomitant]
  9. COD LIVER OIL [Concomitant]

REACTIONS (13)
  - Lung neoplasm malignant [Unknown]
  - Cataract [Unknown]
  - Foreign body sensation in eyes [Unknown]
  - Dry eye [Unknown]
  - Vision blurred [Unknown]
  - Diplopia [Unknown]
  - Muscle spasms [Unknown]
  - Chronic obstructive pulmonary disease [Unknown]
  - Erythema [Unknown]
  - Malaise [Not Recovered/Not Resolved]
  - Ill-defined disorder [Not Recovered/Not Resolved]
  - Eye pain [Not Recovered/Not Resolved]
  - Eye pain [Not Recovered/Not Resolved]
